FAERS Safety Report 13969168 (Version 2)
Quarter: 2017Q4

REPORT INFORMATION
  Report Type: Spontaneous
  Country: US (occurrence: US)
  Receive Date: 20170914
  Receipt Date: 20171011
  Transmission Date: 20180321
  Serious: Yes (Death, Hospitalization)
  Sender: FDA-Public Use
  Company Number: US-ROCHE-1991522

PATIENT
  Age: 78 Year
  Sex: Male

DRUGS (3)
  1. ACTEMRA [Suspect]
     Active Substance: TOCILIZUMAB
     Indication: CYTOKINE RELEASE SYNDROME
     Dosage: 3 DOSES
     Route: 065
     Dates: start: 20170821, end: 20170825
  2. FLUDARABINE [Suspect]
     Active Substance: FLUDARABINE PHOSPHATE
     Indication: PRODUCT USED FOR UNKNOWN INDICATION
     Dosage: 30MG/M2/DAY FOR 4 DAYS
     Route: 065
  3. CYCLOPHOSPHAMIDE. [Suspect]
     Active Substance: CYCLOPHOSPHAMIDE
     Indication: PRODUCT USED FOR UNKNOWN INDICATION
     Dosage: 1G/M2/DAY FOR 3 DAYS
     Route: 065

REACTIONS (4)
  - Cytokine release syndrome [Fatal]
  - Intentional product use issue [Unknown]
  - Off label use [Unknown]
  - Capillary leak syndrome [Unknown]
